FAERS Safety Report 4940915-9 (Version None)
Quarter: 2006Q1

REPORT INFORMATION
  Report Type: 
  Country: None (occurrence: None)
  Receive Date: 20060313
  Receipt Date: 20060301
  Transmission Date: 20060701
  Serious: Yes (Hospitalization)
  Sender: FDA-Public Use
  Company Number: VN-JNJFOC-20060301018

PATIENT
  Age: 9 Decade
  Sex: Female

DRUGS (1)
  1. NIZORAL [Suspect]
     Indication: DANDRUFF
     Dates: start: 20060128

REACTIONS (2)
  - OEDEMA [None]
  - SKIN DISORDER [None]
